FAERS Safety Report 6152782-9 (Version None)
Quarter: 2009Q2

REPORT INFORMATION
  Report Type: 
  Country: None (occurrence: None)
  Receive Date: 20090409
  Receipt Date: 20090331
  Transmission Date: 20091009
  Serious: Yes (Other)
  Sender: FDA-Public Use
  Company Number: SPV1-2009-00567

PATIENT
  Sex: Female
  Weight: 38.1 kg

DRUGS (1)
  1. VYVANSE [Suspect]
     Dosage: 30 MG, 1X/DAY; QD, ORAL
     Route: 048
     Dates: start: 20090321

REACTIONS (2)
  - MUSCLE TWITCHING [None]
  - UNRESPONSIVE TO STIMULI [None]
